FAERS Safety Report 19770695 (Version 1)
Quarter: 2021Q3

REPORT INFORMATION
  Report Type: Spontaneous
  Country: FR (occurrence: FR)
  Receive Date: 20210901
  Receipt Date: 20210901
  Transmission Date: 20211014
  Serious: Yes (Hospitalization)
  Sender: FDA-Public Use
  Company Number: FR-MYLANLABS-2021M1057568

PATIENT
  Sex: Male
  Weight: 1.38 kg

DRUGS (10)
  1. FUROSEMIDE. [Suspect]
     Active Substance: FUROSEMIDE
     Indication: PRODUCT USED FOR UNKNOWN INDICATION
     Dosage: ROUTE OF ADMIN TERM: INFUSION THROUGH PERIPHERAL VENOUS CATHETER
     Route: 042
  2. CAFFEINE CITRATE. [Suspect]
     Active Substance: CAFFEINE CITRATE
     Indication: PRODUCT USED FOR UNKNOWN INDICATION
     Dosage: ROUTE OF ADMIN TERM: INFUSION THROUGH PERIPHERAL VENOUS CATHETER
     Route: 042
  3. HYDROCORTISONE. [Suspect]
     Active Substance: HYDROCORTISONE
     Indication: PRODUCT USED FOR UNKNOWN INDICATION
     Dosage: ROUTE OF ADMIN TERM: INFUSION THROUGH PERIPHERAL VENOUS CATHETER
     Route: 042
  4. DOPAMINE [Concomitant]
     Active Substance: DOPAMINE HYDROCHLORIDE
     Indication: HAEMODYNAMIC INSTABILITY
     Dosage: 2.5 MICROGRAM/KILOGRAM, QMINUTE
     Route: 065
  5. PIPERACILLIN/TAZOBACTAM [Suspect]
     Active Substance: PIPERACILLIN SODIUM\TAZOBACTAM SODIUM
     Indication: PRODUCT USED FOR UNKNOWN INDICATION
     Dosage: ROUTE OF ADMIN TERM: INFUSION THROUGH PERIPHERAL VENOUS CATHETER
     Route: 042
  6. VANCOMYCIN [Suspect]
     Active Substance: VANCOMYCIN
     Indication: PRODUCT USED FOR UNKNOWN INDICATION
     Dosage: ROUTE OF ADMINISTRATION: ADMINISTERED 2 HOURS AFTER CATHETERIZATION VIA A ONE?HOUR LONG INFUSION
     Route: 042
  7. VANCOMYCIN [Suspect]
     Active Substance: VANCOMYCIN
     Dosage: STARTED ON DAY 6 OF LIFE
     Route: 042
  8. ALPROSTADIL. [Concomitant]
     Active Substance: ALPROSTADIL
     Indication: EBSTEIN^S ANOMALY
     Dosage: UNK
     Route: 065
  9. INSULIN [Concomitant]
     Active Substance: INSULIN NOS
     Indication: BLOOD GLUCOSE
     Dosage: UNK
     Route: 065
  10. ACETAMINOPHEN. [Suspect]
     Active Substance: ACETAMINOPHEN
     Indication: PRODUCT USED FOR UNKNOWN INDICATION
     Dosage: ROUTE OF ADMIN TERM: INFUSION THROUGH PERIPHERAL VENOUS CATHETER
     Route: 042

REACTIONS (1)
  - Skin necrosis [Unknown]
